FAERS Safety Report 24077574 (Version 1)
Quarter: 2024Q3

REPORT INFORMATION
  Report Type: Spontaneous
  Country: FR (occurrence: FR)
  Receive Date: 20240711
  Receipt Date: 20240711
  Transmission Date: 20241017
  Serious: Yes (Life-Threatening)
  Sender: ROCHE
  Company Number: None

PATIENT
  Age: 7 Year
  Sex: Male
  Weight: 17 kg

DRUGS (5)
  1. RITUXIMAB [Suspect]
     Active Substance: RITUXIMAB
     Indication: Burkitt^s lymphoma
     Route: 065
     Dates: start: 20240128, end: 20240407
  2. METHOTREXATE [Suspect]
     Active Substance: METHOTREXATE
     Indication: Burkitt^s lymphoma
     Route: 065
     Dates: start: 20240204, end: 20240224
  3. CYTARABINE [Suspect]
     Active Substance: CYTARABINE
     Indication: Burkitt^s lymphoma
     Route: 029
     Dates: start: 20240314, end: 20240419
  4. ETOPOSIDE [Concomitant]
     Active Substance: ETOPOSIDE
  5. CYTARABINE [Concomitant]
     Active Substance: CYTARABINE
     Dates: start: 20240314, end: 20240419

REACTIONS (2)
  - Toxic leukoencephalopathy [Recovering/Resolving]
  - Central nervous system enteroviral infection [Recovering/Resolving]

NARRATIVE: CASE EVENT DATE: 20240503
